FAERS Safety Report 6523425-7 (Version None)
Quarter: 2009Q4

REPORT INFORMATION
  Report Type: 
  Country: None (occurrence: None)
  Receive Date: 20091214
  Receipt Date: 20090521
  Transmission Date: 20100525
  Serious: Yes (Other)
  Sender: FDA-Public Use
  Company Number: 634603

PATIENT
  Age: 56 Year
  Sex: Male
  Weight: 79.4 kg

DRUGS (3)
  1. PEGASYS [Suspect]
     Indication: HEPATITIS C
     Dosage: 180 UG 1 PER 1 WEEK SUBCUTANEOUS
     Route: 058
     Dates: start: 20090419, end: 20090519
  2. RIBAVIRIN [Suspect]
     Indication: HEPATITIS C
     Dosage: 200 MG DAILY ORAL
     Route: 048
     Dates: start: 20090419, end: 20090519
  3. COZAAR [Concomitant]

REACTIONS (1)
  - RETINOPATHY [None]
